FAERS Safety Report 21960816 (Version 1)
Quarter: 2023Q1

REPORT INFORMATION
  Report Type: Report from Study
  Country: US (occurrence: US)
  Receive Date: 20230207
  Receipt Date: 20230207
  Transmission Date: 20230417
  Serious: Yes (Hospitalization, Other)
  Sender: FDA-Public Use
  Company Number: US-HBP-2023US028348

PATIENT
  Sex: Female

DRUGS (1)
  1. TRUSELTIQ [Suspect]
     Active Substance: INFIGRATINIB
     Indication: Cholangiocarcinoma
     Dosage: 75 MILLIGRAM, QD
     Route: 048
     Dates: start: 202209, end: 202211

REACTIONS (8)
  - Calciphylaxis [Recovering/Resolving]
  - Skin wound [Recovering/Resolving]
  - Skin discolouration [Recovering/Resolving]
  - Debridement [Unknown]
  - Therapy interrupted [Unknown]
  - Off label use [Unknown]
  - Blood calcium abnormal [Recovering/Resolving]
  - Nail discolouration [Recovered/Resolved]

NARRATIVE: CASE EVENT DATE: 20220101
